FAERS Safety Report 8145620-6 (Version None)
Quarter: 2012Q1

REPORT INFORMATION
  Report Type: 
  Country: None (occurrence: None)
  Receive Date: 20120217
  Receipt Date: 20120206
  Transmission Date: 20120608
  Serious: Yes (Hospitalization)
  Sender: FDA-Public Use
  Company Number: US-MYLANLABS-2011S1000185

PATIENT
  Age: 11 Year
  Sex: Male

DRUGS (45)
  1. FAMOTIDINE [Suspect]
     Route: 041
     Dates: start: 20100617, end: 20100626
  2. AMPICILLIN [Suspect]
     Route: 041
     Dates: start: 20100715, end: 20100716
  3. MIDAZOLAM [Suspect]
     Route: 041
     Dates: start: 20100621, end: 20100621
  4. GLYCEROL 2.6% [Suspect]
     Route: 041
     Dates: start: 20100617, end: 20100618
  5. NICARDIPINE HYDROCHLORIDE [Suspect]
     Route: 041
     Dates: start: 20100622, end: 20100624
  6. DEXPANTHENOL [Suspect]
     Route: 041
     Dates: start: 20100604, end: 20100705
  7. RISPERIDONE [Suspect]
     Route: 048
     Dates: start: 20100702, end: 20100714
  8. SPIRONOLACTONE [Suspect]
     Route: 048
     Dates: start: 20100626, end: 20100706
  9. TRICLOFOS SODIUM [Suspect]
     Route: 048
     Dates: start: 20100628, end: 20100705
  10. DEXAMETHASONE [Suspect]
     Route: 042
     Dates: start: 20100617, end: 20100622
  11. LANSOPRAZOLE [Suspect]
     Route: 048
     Dates: start: 20100628, end: 20100728
  12. ACETAMINOPHEN [Suspect]
     Route: 054
     Dates: start: 20100630, end: 20100716
  13. FAMOTIDINE [Suspect]
     Route: 048
     Dates: start: 20100626, end: 20100715
  14. SODIUM PICOSULFATE [Suspect]
     Route: 048
     Dates: start: 20100620, end: 20100620
  15. HEPARIN SODIUM [Suspect]
     Route: 041
     Dates: start: 20100808, end: 20100812
  16. LIDOCAINE [Suspect]
     Route: 041
     Dates: start: 20100621, end: 20100709
  17. OFLOXACIN [Suspect]
     Route: 047
     Dates: start: 20100728, end: 20100729
  18. CEFAZOLIN [Suspect]
     Route: 041
     Dates: start: 20100622, end: 20100624
  19. STREPTOCOCCUS FAECALIS [Suspect]
     Route: 048
     Dates: start: 20100711, end: 20100718
  20. FUROSEMIDE [Suspect]
     Route: 048
     Dates: start: 20100626, end: 20100706
  21. OMEPRAZOLE [Suspect]
     Route: 041
     Dates: start: 20100716, end: 20100721
  22. EPINEPHRINE [Suspect]
     Route: 041
     Dates: start: 20100621, end: 20100621
  23. HYALURONATE SODIUM [Suspect]
     Route: 047
     Dates: start: 20100723, end: 20100821
  24. CLINDAMYCIN PHOSPHATE [Suspect]
     Route: 042
     Dates: start: 20100708, end: 20100710
  25. PIPERACILLIN SODIUM [Suspect]
     Route: 041
     Dates: start: 20100715, end: 20100716
  26. BIOFERMIN T [Suspect]
     Route: 048
     Dates: start: 20100711, end: 20100718
  27. DEXMEDETOMIDINE HYDROCHLORIDE [Suspect]
     Route: 041
     Dates: start: 20100704, end: 20100705
  28. HYDROXYZINE HCL [Suspect]
     Route: 041
     Dates: start: 20100709, end: 20100709
  29. NITRAZEPAM [Suspect]
     Route: 041
     Dates: start: 20100617, end: 20100709
  30. ULTIVA [Suspect]
     Route: 042
     Dates: start: 20100621, end: 20100708
  31. DIAZEPAM [Suspect]
     Route: 048
     Dates: start: 20100622, end: 20100701
  32. MORPHINE HYDROCHLORIDE [Suspect]
     Route: 041
     Dates: start: 20100621, end: 20100709
  33. CEFTRIAXONE [Suspect]
     Indication: INFECTION
     Route: 041
     Dates: start: 20100630, end: 20100707
  34. LACTOBACILLUS CASEI [Suspect]
     Route: 048
     Dates: start: 20100702, end: 20100709
  35. CALCIUM GLUCONATE [Suspect]
     Route: 041
     Dates: start: 20100621, end: 20100621
  36. ETIZOLAM [Suspect]
     Dosage: UNIT CONT:1
     Route: 048
     Dates: start: 20100701, end: 20100701
  37. DIAZEPAM [Suspect]
     Route: 048
     Dates: start: 20100702, end: 20100722
  38. PHENOBARBITAL TAB [Suspect]
     Route: 048
     Dates: start: 20100622, end: 20100709
  39. ACETAMINOPHEN [Suspect]
     Indication: PYREXIA
     Route: 048
     Dates: start: 20100627, end: 20100716
  40. HEPARIN SODIUM [Suspect]
     Route: 041
     Dates: start: 20100617
  41. ATROPINE SULFATE [Suspect]
     Route: 041
     Dates: start: 20100617, end: 20100622
  42. FENTANYL [Suspect]
     Route: 041
     Dates: start: 20100621, end: 20100708
  43. ROCURONIUM BROMIDE [Suspect]
     Route: 041
     Dates: start: 20100617, end: 20100706
  44. FLURBIPROFEN [Suspect]
     Route: 041
     Dates: start: 20100709, end: 20100709
  45. GLYCEROL 2.6% [Suspect]
     Indication: CONSTIPATION
     Route: 054
     Dates: start: 20100621

REACTIONS (1)
  - DRUG RASH WITH EOSINOPHILIA AND SYSTEMIC SYMPTOMS [None]
